FAERS Safety Report 19349844 (Version 2)
Quarter: 2021Q2

REPORT INFORMATION
  Report Type: Spontaneous
  Country: BE (occurrence: BE)
  Receive Date: 20210531
  Receipt Date: 20210605
  Transmission Date: 20210717
  Serious: Yes (Hospitalization, Other)
  Sender: FDA-Public Use
  Company Number: BE-TEVA-2021-BE-1915797

PATIENT
  Age: 63 Year
  Sex: Male
  Weight: 54.9 kg

DRUGS (4)
  1. CISPLATIN. [Suspect]
     Active Substance: CISPLATIN
     Route: 065
  2. LONQUEX [Suspect]
     Active Substance: LIPEGFILGRASTIM
     Route: 058
  3. TAXOTERE [Concomitant]
     Active Substance: DOCETAXEL
  4. 5?FU [Suspect]
     Active Substance: FLUOROURACIL
     Route: 065

REACTIONS (3)
  - Inappropriate schedule of product administration [Unknown]
  - Neutropenia [Recovered/Resolved]
  - Septic shock [Unknown]

NARRATIVE: CASE EVENT DATE: 202105
